FAERS Safety Report 9243164 (Version 1)
Quarter: 2013Q2

REPORT INFORMATION
  Report Type: Spontaneous
  Country: US (occurrence: US)
  Receive Date: 20130419
  Receipt Date: 20130419
  Transmission Date: 20140414
  Serious: Yes (Death)
  Sender: FDA-Public Use
  Company Number: US-PFIZER INC-2013122707

PATIENT
  Sex: Male

DRUGS (1)
  1. FLECTOR [Suspect]
     Indication: METASTASIS
     Dosage: UNK
     Route: 062

REACTIONS (3)
  - Neoplasm malignant [Fatal]
  - Off label use [Unknown]
  - Drug administered at inappropriate site [Unknown]
